FAERS Safety Report 12699709 (Version 1)
Quarter: 2016Q3

REPORT INFORMATION
  Report Type: Spontaneous
  Country: CA (occurrence: CA)
  Receive Date: 20160830
  Receipt Date: 20160830
  Transmission Date: 20161109
  Serious: Yes (Hospitalization)
  Sender: FDA-Public Use
  Company Number: CA-NORTH CREEK PHARMACEUTICALS LLC-2016VTS00061

PATIENT
  Age: 23 Year
  Sex: Female
  Weight: 63 kg

DRUGS (1)
  1. DAPSONE. [Suspect]
     Active Substance: DAPSONE
     Dosage: 2.2 G, UNK
     Route: 048

REACTIONS (9)
  - Cyanosis central [None]
  - Mental status changes [Recovered/Resolved]
  - Toxicity to various agents [Recovered/Resolved]
  - Methaemoglobinaemia [None]
  - Overdose [Recovered/Resolved]
  - Haemodynamic instability [Recovered/Resolved]
  - Headache [None]
  - Haemodialysis [None]
  - Thrombocytopenia [None]
